FAERS Safety Report 5707965-6 (Version None)
Quarter: 2008Q2

REPORT INFORMATION
  Report Type: 
  Country: None (occurrence: None)
  Receive Date: 20080417
  Receipt Date: 20080407
  Transmission Date: 20081010
  Serious: Yes (Other)
  Sender: FDA-Public Use
  Company Number: PHHY2008ES04767

PATIENT
  Age: 66 Year
  Sex: Female

DRUGS (8)
  1. ZOMETA [Suspect]
     Dosage: 4 MG
     Route: 042
     Dates: start: 20040723, end: 20071123
  2. VALTRAX [Concomitant]
     Dosage: 500 MG, QD
     Route: 048
  3. EUTIROX [Concomitant]
     Indication: HYPOTHYROIDISM
     Dosage: 75 MICROGRAMS
     Route: 048
  4. SEVREDOL [Concomitant]
     Dosage: 10 MG
     Route: 048
  5. VELCADE [Concomitant]
     Indication: MULTIPLE MYELOMA
     Dosage: 3.5 MG
     Route: 042
     Dates: start: 20061020, end: 20070511
  6. REVLIMID [Concomitant]
     Indication: MULTIPLE MYELOMA
     Dosage: 5 MG
     Route: 048
     Dates: start: 20071123
  7. DACORTIN [Concomitant]
     Dosage: 30 MG
     Route: 048
  8. CARDYL [Concomitant]
     Indication: HYPERCHOLESTEROLAEMIA
     Dosage: 20 MG
     Route: 048

REACTIONS (1)
  - OSTEONECROSIS [None]
